FAERS Safety Report 19754955 (Version 1)
Quarter: 2021Q3

REPORT INFORMATION
  Report Type: Spontaneous
  Country: US (occurrence: US)
  Receive Date: 20210824
  Receipt Date: 20210824
  Transmission Date: 20211014
  Serious: Yes (Hospitalization)
  Sender: FDA-Public Use
  Company Number: None

PATIENT
  Age: 46 Year
  Sex: Female

DRUGS (11)
  1. NEOMYCIN. [Concomitant]
     Active Substance: NEOMYCIN
  2. STELARA [Suspect]
     Active Substance: USTEKINUMAB
     Indication: CROHN^S DISEASE
     Dosage: ?          OTHER FREQUENCY:EVERY 8 WEEKS;?
     Route: 058
     Dates: start: 20200415
  3. ALPRAZOLAM. [Concomitant]
     Active Substance: ALPRAZOLAM
  4. AMOX/K CLAV [Concomitant]
     Active Substance: AMOXICILLIN\CLAVULANATE POTASSIUM
  5. PROGESTERONE. [Concomitant]
     Active Substance: PROGESTERONE
  6. METRONIDAZOL [Concomitant]
     Active Substance: METRONIDAZOLE
  7. ESTRADIOL. [Concomitant]
     Active Substance: ESTRADIOL
  8. DIAZEPAM. [Concomitant]
     Active Substance: DIAZEPAM
  9. ONDANSETRON [Concomitant]
     Active Substance: ONDANSETRON
  10. FOLIC ACID. [Concomitant]
     Active Substance: FOLIC ACID
  11. PREDNISONE. [Concomitant]
     Active Substance: PREDNISONE

REACTIONS (2)
  - Surgery [None]
  - Therapy interrupted [None]

NARRATIVE: CASE EVENT DATE: 20210625
